FAERS Safety Report 4575661-7 (Version None)
Quarter: 2005Q1

REPORT INFORMATION
  Report Type: 
  Country: None (occurrence: None)
  Receive Date: 20050209
  Receipt Date: 20050124
  Transmission Date: 20050727
  Serious: Yes (Hospitalization)
  Sender: FDA-Public Use
  Company Number: DE-GLAXOSMITHKLINE-D0045693A

PATIENT
  Age: 26 Year
  Sex: Male
  Weight: 64 kg

DRUGS (4)
  1. ZINNAT [Suspect]
     Indication: PYREXIA
     Dosage: 250MG TWICE PER DAY
     Route: 048
     Dates: start: 20041227, end: 20050102
  2. NOVALGIN [Suspect]
     Indication: BACK PAIN
     Dosage: 1TAB TWICE PER DAY
     Route: 048
     Dates: start: 20020101
  3. PENICILLIN [Suspect]
     Route: 065
     Dates: start: 20050103, end: 20050109
  4. DICLOFENAC [Concomitant]

REACTIONS (2)
  - AGRANULOCYTOSIS [None]
  - LEUKOPENIA [None]
